FAERS Safety Report 5898294-9 (Version None)
Quarter: 2008Q3

REPORT INFORMATION
  Report Type: 
  Country: None (occurrence: None)
  Receive Date: 20080925
  Receipt Date: 20070911
  Transmission Date: 20090109
  Serious: Yes (Hospitalization)
  Sender: FDA-Public Use
  Company Number: A0676041A

PATIENT
  Age: 31 Year
  Sex: Male
  Weight: 63.6 kg

DRUGS (2)
  1. WELLBUTRIN XL [Suspect]
     Indication: DEPRESSION
     Dosage: 150MG IN THE MORNING
     Route: 048
     Dates: start: 20070314, end: 20070712
  2. NO CONCURRENT MEDICATION [Concomitant]

REACTIONS (5)
  - CONVULSION [None]
  - INCONTINENCE [None]
  - LOSS OF CONSCIOUSNESS [None]
  - POSTICTAL STATE [None]
  - SYNCOPE [None]
